FAERS Safety Report 8597758-7 (Version None)
Quarter: 2012Q3

REPORT INFORMATION
  Report Type: 
  Country: None (occurrence: None)
  Receive Date: 20120816
  Receipt Date: 20120813
  Transmission Date: 20120928
  Serious: Yes (Other)
  Sender: FDA-Public Use
  Company Number: PHHY2011CA82855

PATIENT
  Sex: Female

DRUGS (2)
  1. IRESSA [Suspect]
  2. SANDOSTATIN LAR [Suspect]
     Indication: NEUROENDOCRINE TUMOUR
     Dosage: 30 MG, EVERY 4 WEEK
     Route: 030
     Dates: start: 20110621

REACTIONS (3)
  - LUNG DISORDER [None]
  - DYSPNOEA [None]
  - FATIGUE [None]
